FAERS Safety Report 12812638 (Version 3)
Quarter: 2017Q1

REPORT INFORMATION
  Report Type: Spontaneous
  Country: US (occurrence: US)
  Receive Date: 20161005
  Receipt Date: 20170203
  Transmission Date: 20170428
  Serious: Yes (Death, Other)
  Sender: FDA-Public Use
  Company Number: US-ELI_LILLY_AND_COMPANY-US201609011711

PATIENT
  Age: 48 Year
  Sex: Female
  Weight: 126 kg

DRUGS (15)
  1. FUROSEMIDE. [Concomitant]
     Active Substance: FUROSEMIDE
     Dosage: 20 MG, QD
     Dates: start: 20160708
  2. VITAMIN D [Concomitant]
     Active Substance: CHOLECALCIFEROL
     Dosage: 1 DF, UNK
     Dates: start: 20140616
  3. INSULIN HUMAN [Suspect]
     Active Substance: INSULIN HUMAN
     Indication: TYPE 2 DIABETES MELLITUS
     Dosage: UNK, BID
     Route: 065
     Dates: start: 20150506
  4. ATORVASTATINA [Concomitant]
     Active Substance: ATORVASTATIN
  5. LISINOPRIL. [Concomitant]
     Active Substance: LISINOPRIL
     Dosage: 10 MG, QD
     Route: 048
     Dates: start: 20140718
  6. VITAMIN B12 [Concomitant]
     Active Substance: CYANOCOBALAMIN
     Dosage: UNK, QD
     Dates: start: 20140616
  7. ATORVASTATIN CALCIUM. [Concomitant]
     Active Substance: ATORVASTATIN CALCIUM
     Dosage: UNK, EACH EVENING
     Dates: start: 20150831
  8. HYDROXYZINE HYDROCHLORIDE. [Concomitant]
     Active Substance: HYDROXYZINE HYDROCHLORIDE
     Dosage: 25 MG, QD
     Route: 048
     Dates: start: 20160718
  9. METFORMIN HCL [Concomitant]
     Active Substance: METFORMIN HYDROCHLORIDE
     Dosage: UNK, BID
  10. METFORMIN [Concomitant]
     Active Substance: METFORMIN HYDROCHLORIDE
     Dosage: 2000 MG, QD
  11. FERROUS SULFATE. [Concomitant]
     Active Substance: FERROUS SULFATE
     Dosage: UNK, QD
  12. GABAPENTIN. [Concomitant]
     Active Substance: GABAPENTIN
     Dosage: 300 MG, QD
     Dates: start: 20151026
  13. ZYRTEC                             /00884302/ [Concomitant]
     Dosage: UNK, OTHER
     Dates: start: 20140616
  14. METFORMIN HCL [Concomitant]
     Active Substance: METFORMIN HYDROCHLORIDE
     Dosage: UNK, QD
     Dates: start: 20150708
  15. VENTOLIN HFA [Concomitant]
     Active Substance: ALBUTEROL SULFATE
     Dosage: UNK, OTHER
     Route: 055
     Dates: start: 20111115

REACTIONS (38)
  - Abdominal pain [Unknown]
  - Depression [Unknown]
  - Hair growth abnormal [Unknown]
  - Microalbuminuria [Unknown]
  - Pulmonary embolism [Unknown]
  - Peripheral vascular disorder [Unknown]
  - Blood thyroid stimulating hormone abnormal [Unknown]
  - Hirsutism [Unknown]
  - Bone density decreased [Unknown]
  - Somnolence [Unknown]
  - Snoring [Unknown]
  - Anxiety [Unknown]
  - Diabetic foot [Unknown]
  - Peripheral swelling [Unknown]
  - Cellulitis [Unknown]
  - Nausea [Unknown]
  - Acrochordon [Unknown]
  - Skin discolouration [Unknown]
  - Urinary tract infection [Unknown]
  - Nasopharyngitis [Unknown]
  - Anaemia [Unknown]
  - Limb injury [Unknown]
  - Chills [Unknown]
  - Blood glucose decreased [Unknown]
  - Chronic kidney disease [Unknown]
  - Hypoxia [Unknown]
  - Bacterial disease carrier [Unknown]
  - Central obesity [Unknown]
  - Sleep apnoea syndrome [Unknown]
  - Fatigue [Unknown]
  - Death [Fatal]
  - Hypoglycaemia [Unknown]
  - Insomnia [Unknown]
  - Infection [Unknown]
  - Glycosylated haemoglobin increased [Unknown]
  - Endometrial cancer [Unknown]
  - Haematuria [Unknown]
  - Vitamin D deficiency [Unknown]

NARRATIVE: CASE EVENT DATE: 201609
